FAERS Safety Report 12552874 (Version 1)
Quarter: 2016Q3

REPORT INFORMATION
  Report Type: Spontaneous
  Country: US (occurrence: None)
  Receive Date: 20160712
  Receipt Date: 20160712
  Transmission Date: 20161109
  Serious: Yes (Life-Threatening, Hospitalization)
  Sender: FDA-Public Use
  Company Number: None

PATIENT
  Age: 59 Year
  Sex: Male
  Weight: 101.7 kg

DRUGS (1)
  1. HEPARIN/SODIUM CHLORIDE [Suspect]
     Active Substance: HEPARIN SODIUM\SODIUM CHLORIDE
     Indication: CARDIAC OPERATION
     Dosage: 8000 UNITS QID IV
     Route: 042
     Dates: start: 20150331, end: 20150331

REACTIONS (3)
  - Haemorrhage intracranial [None]
  - Haematoma [None]
  - Agitation [None]

NARRATIVE: CASE EVENT DATE: 20150331
